FAERS Safety Report 23994293 (Version 1)
Quarter: 2024Q2

REPORT INFORMATION
  Report Type: Spontaneous
  Country: US (occurrence: US)
  Receive Date: 20240620
  Receipt Date: 20240620
  Transmission Date: 20240716
  Serious: Yes (Hospitalization, Other)
  Sender: FDA-Public Use
  Company Number: US-SERVIER-S24007442

PATIENT

DRUGS (9)
  1. ASPARLAS [Suspect]
     Active Substance: CALASPARGASE PEGOL-MKNL
     Indication: B-cell type acute leukaemia
     Dosage: 3750 IU, EVERY 4-8 WEEKS
     Route: 042
     Dates: start: 20231121, end: 20240209
  2. ASPARLAS [Suspect]
     Active Substance: CALASPARGASE PEGOL-MKNL
     Dosage: 3750 IU
     Route: 042
     Dates: start: 20240527, end: 20240527
  3. VINCRISTINE [Concomitant]
     Active Substance: VINCRISTINE
     Indication: B-cell type acute leukaemia
     Dosage: 1.5 MG/M2, 1X/WEEK
     Route: 042
     Dates: start: 20231118
  4. METHOTREXATE [Concomitant]
     Active Substance: METHOTREXATE
     Indication: B-cell type acute leukaemia
     Dosage: 12 MG
     Route: 037
     Dates: start: 20231124
  5. PREDNISONE [Concomitant]
     Active Substance: PREDNISONE
     Indication: B-cell type acute leukaemia
     Dosage: 100 MG, QD
     Route: 048
     Dates: start: 20231118, end: 20231214
  6. CYCLOPHOSPHAMIDE [Concomitant]
     Active Substance: CYCLOPHOSPHAMIDE
     Indication: B-cell type acute leukaemia
     Dosage: 750 MG, 2 DOSES
     Route: 042
     Dates: start: 20231222, end: 20240126
  7. CYTARABINE [Concomitant]
     Active Substance: CYTARABINE
     Indication: B-cell type acute leukaemia
     Dosage: 56 MG, X16 DOSES
     Route: 042
     Dates: start: 20231222, end: 20240205
  8. MERCAPTOPURINE [Concomitant]
     Active Substance: MERCAPTOPURINE
     Indication: B-cell type acute leukaemia
     Dosage: 325 MG, 1X/WEEK
     Route: 048
     Dates: start: 20231222, end: 20240208
  9. DOXORUBICIN [Concomitant]
     Active Substance: DOXORUBICIN
     Indication: B-cell type acute leukaemia
     Dosage: 25 MG/M2, 1X/WEEK
     Route: 042
     Dates: start: 20240524

REACTIONS (1)
  - Hypersensitivity [Recovered/Resolved]

NARRATIVE: CASE EVENT DATE: 20240527
